FAERS Safety Report 5853307-5 (Version None)
Quarter: 2008Q3

REPORT INFORMATION
  Report Type: 
  Country: None (occurrence: None)
  Receive Date: 20080821
  Receipt Date: 20080811
  Transmission Date: 20090109
  Serious: Yes (Hospitalization, Other)
  Sender: FDA-Public Use
  Company Number: US-PFIZER INC-2008067008

PATIENT
  Sex: Female
  Weight: 90.9 kg

DRUGS (6)
  1. TIKOSYN [Suspect]
     Indication: ATRIAL FIBRILLATION
     Dates: start: 20071001, end: 20080801
  2. DIAZEPAM [Concomitant]
  3. LABETALOL HCL [Concomitant]
  4. FUROSEMIDE [Concomitant]
  5. WARFARIN SODIUM [Concomitant]
  6. ZONISAMIDE [Concomitant]

REACTIONS (2)
  - DYSPNOEA [None]
  - SPINAL COLUMN STENOSIS [None]
